FAERS Safety Report 25930521 (Version 1)
Quarter: 2025Q4

REPORT INFORMATION
  Report Type: Spontaneous
  Country: EU (occurrence: EU)
  Receive Date: 20251016
  Receipt Date: 20251016
  Transmission Date: 20260118
  Serious: Yes (Life-Threatening, Other)
  Sender: ACCORD
  Company Number: None

PATIENT
  Age: 45 Year
  Sex: Male
  Weight: 66 kg

DRUGS (1)
  1. OXALIPLATIN [Suspect]
     Active Substance: OXALIPLATIN
     Indication: Oesophageal adenocarcinoma
     Dosage: 150.45 MG IN 5% GLUCOSE 500ML
     Dates: start: 20250805

REACTIONS (2)
  - Dyspnoea [Recovered/Resolved]
  - Loss of consciousness [Recovered/Resolved]

NARRATIVE: CASE EVENT DATE: 20250805
